FAERS Safety Report 4600228-1 (Version None)
Quarter: 2005Q1

REPORT INFORMATION
  Report Type: 
  Country: None (occurrence: None)
  Receive Date: 20050303
  Receipt Date: 20050303
  Transmission Date: 20050727
  Serious: No
  Sender: FDA-Public Use
  Company Number: None

PATIENT
  Age: 39 Year
  Sex: Female
  Weight: 65.7716 kg

DRUGS (2)
  1. PAXIL CR [Suspect]
     Indication: FIBROMYALGIA
     Dosage: 1    ONCE A DAY   ORAL
     Route: 048
  2. PAXIL CR [Suspect]
     Indication: SOMNOLENCE
     Dosage: 1    ONCE A DAY   ORAL
     Route: 048

REACTIONS (5)
  - DIZZINESS [None]
  - FEELING ABNORMAL [None]
  - HEADACHE [None]
  - NAUSEA [None]
  - PRURITUS [None]
